FAERS Safety Report 6721811-3 (Version None)
Quarter: 2010Q2

REPORT INFORMATION
  Report Type: 
  Country: None (occurrence: None)
  Receive Date: 20100512
  Receipt Date: 20100505
  Transmission Date: 20101027
  Serious: Yes (Death)
  Sender: FDA-Public Use
  Company Number: CO-ROCHE-701577

PATIENT
  Sex: Female

DRUGS (2)
  1. AVASTIN [Suspect]
     Indication: GASTRIC CANCER
     Dosage: FREQUENCY: Q21 DAYS
     Route: 042
     Dates: start: 20091013, end: 20100301
  2. XELODA [Suspect]
     Indication: GASTRIC CANCER
     Dosage: FREQUENCY: QD
     Route: 048
     Dates: start: 20091010, end: 20100319

REACTIONS (2)
  - CARDIOPULMONARY FAILURE [None]
  - DISEASE PROGRESSION [None]
